FAERS Safety Report 14711928 (Version 6)
Quarter: 2018Q2

REPORT INFORMATION
  Report Type: Report from Study
  Country: None (occurrence: TR)
  Receive Date: 20180403
  Receipt Date: 20180522
  Transmission Date: 20180711
  Serious: Yes (Hospitalization)
  Sender: FDA-Public Use
  Company Number: TR-ABBVIE-18K-161-2308849-00

PATIENT
  Age: 78 Year
  Sex: Female

DRUGS (9)
  1. EUTHYROX [Concomitant]
     Active Substance: LEVOTHYROXINE SODIUM
     Indication: HYPOTHYROIDISM
     Route: 048
  2. DUODOPA [Suspect]
     Active Substance: CARBIDOPA\LEVODOPA
     Indication: PARKINSON^S DISEASE
     Dosage: MORNING DOSE (ML): 6,00?CONTINUOUS DOSE(ML):2,20?EXTRA DOSE(ML):0,50
     Route: 050
     Dates: start: 20180328, end: 20180402
  3. CORASPIN [Concomitant]
     Active Substance: ASPIRIN
     Indication: ANTICOAGULANT THERAPY
     Route: 048
     Dates: start: 20180329
  4. STALEVO [Concomitant]
     Active Substance: CARBIDOPA\ENTACAPONE\LEVODOPA
     Indication: PARKINSON^S DISEASE
     Dosage: 4X1
     Route: 048
  5. B.T. ENEMA [Concomitant]
     Indication: CONSTIPATION
     Route: 054
     Dates: start: 20180327
  6. SEROQUEL [Concomitant]
     Active Substance: QUETIAPINE FUMARATE
     Indication: AGITATION
     Route: 048
  7. CITOL [Concomitant]
     Indication: SEDATIVE THERAPY
     Route: 048
     Dates: start: 2008
  8. TRANKO BUSKAS [Concomitant]
     Active Substance: BUTYLSCOPOLAMINE BROMIDE\MEDAZEPAM
     Indication: CONSTIPATION
     Route: 048
  9. DUODOPA [Suspect]
     Active Substance: CARBIDOPA\LEVODOPA
     Dosage: MORNING DOSE: 6. 00 ML?CONTINUOUS DOSE: 1.80 ML?EXTRA DOSE: 0. 50 ML
     Route: 050
     Dates: start: 20180413, end: 20180518

REACTIONS (10)
  - Urinary retention [Recovered/Resolved]
  - Decubitus ulcer [Unknown]
  - Gallbladder perforation [Not Recovered/Not Resolved]
  - Abdominal rigidity [Recovering/Resolving]
  - Urinary tract infection [Not Recovered/Not Resolved]
  - Headache [Not Recovered/Not Resolved]
  - Respiratory tract infection [Not Recovered/Not Resolved]
  - Abdominal distension [Recovering/Resolving]
  - Abdominal pain [Not Recovered/Not Resolved]
  - Secretion discharge [Recovered/Resolved]

NARRATIVE: CASE EVENT DATE: 2018
